FAERS Safety Report 8462101-0 (Version None)
Quarter: 2012Q2

REPORT INFORMATION
  Report Type: 
  Country: None (occurrence: None)
  Receive Date: 20120625
  Receipt Date: 20120614
  Transmission Date: 20120825
  Serious: Yes (Other)
  Sender: FDA-Public Use
  Company Number: JP-JNJFOC-20111204371

PATIENT
  Sex: Female

DRUGS (10)
  1. REMICADE [Suspect]
     Route: 042
     Dates: start: 20110101
  2. REMICADE [Suspect]
     Route: 042
     Dates: start: 20100204
  3. REMICADE [Suspect]
     Indication: CROHN'S DISEASE
     Route: 042
     Dates: start: 20090319
  4. REMICADE [Suspect]
     Route: 042
     Dates: start: 20101101
  5. FAMOTIDINE [Suspect]
     Indication: PRODUCT USED FOR UNKNOWN INDICATION
     Route: 048
     Dates: start: 20090901, end: 20101022
  6. RIZE [Concomitant]
     Route: 048
     Dates: start: 20080101
  7. AMOBAN [Concomitant]
     Route: 048
     Dates: start: 20080101
  8. REMICADE [Suspect]
     Route: 042
     Dates: start: 20100918
  9. ALFAROL [Suspect]
     Indication: OSTEOPOROSIS
     Route: 048
     Dates: start: 20100901, end: 20101022
  10. SULPIRIDE [Concomitant]
     Route: 048
     Dates: start: 20080101

REACTIONS (1)
  - PEMPHIGOID [None]
